FAERS Safety Report 9655948 (Version 3)
Quarter: 2013Q4

REPORT INFORMATION
  Report Type: Spontaneous
  Country: GB (occurrence: GB)
  Receive Date: 20131030
  Receipt Date: 20131207
  Transmission Date: 20140711
  Serious: Yes (Hospitalization)
  Sender: FDA-Public Use
  Company Number: GB-ACCORD-020087

PATIENT
  Age: 58 Year
  Sex: Female

DRUGS (4)
  1. GLIMEPIRIDE [Suspect]
     Indication: PRODUCT USED FOR UNKNOWN INDICATION
     Dosage: 6 MG, UNK
  2. METFORMIN [Suspect]
     Indication: PRODUCT USED FOR UNKNOWN INDICATION
  3. FORXIGA [Suspect]
     Indication: PRODUCT USED FOR UNKNOWN INDICATION
  4. SITAGLIPTIN [Suspect]
     Indication: PRODUCT USED FOR UNKNOWN INDICATION
     Dosage: 100 MG, UNK

REACTIONS (2)
  - Ketoacidosis [Recovering/Resolving]
  - Blood glucose increased [Recovering/Resolving]
